FAERS Safety Report 22051994 (Version 1)
Quarter: 2023Q1

REPORT INFORMATION
  Report Type: Spontaneous
  Country: KR (occurrence: KR)
  Receive Date: 20230302
  Receipt Date: 20230302
  Transmission Date: 20230417
  Serious: Yes (Other)
  Sender: FDA-Public Use
  Company Number: KR-UCBSA-2023009310

PATIENT
  Sex: Male

DRUGS (2)
  1. KEPPRA [Suspect]
     Active Substance: LEVETIRACETAM
     Indication: Congenital pulmonary valve atresia
     Dosage: 80 MILLIGRAM, 2X/DAY (BID)
     Dates: start: 20201015
  2. KEPPRA [Suspect]
     Active Substance: LEVETIRACETAM
     Indication: Off label use

REACTIONS (2)
  - Neutropenia [Recovered/Resolved]
  - Off label use [Unknown]

NARRATIVE: CASE EVENT DATE: 20201015
